FAERS Safety Report 7884367-8 (Version None)
Quarter: 2011Q4

REPORT INFORMATION
  Report Type: 
  Country: None (occurrence: None)
  Receive Date: 20111102
  Receipt Date: 20111027
  Transmission Date: 20120403
  Serious: Yes (Other)
  Sender: FDA-Public Use
  Company Number: BR-ROCHE-1007787

PATIENT
  Sex: Male

DRUGS (1)
  1. CLONAZEPAM [Suspect]
     Indication: DEPRESSION

REACTIONS (4)
  - DRY MOUTH [None]
  - SLEEP DISORDER [None]
  - INTERVERTEBRAL DISC PROTRUSION [None]
  - BLOOD PRESSURE INCREASED [None]
